FAERS Safety Report 9841410 (Version 1)
Quarter: 2013Q4

REPORT INFORMATION
  Report Type: Spontaneous
  Country: US (occurrence: None)
  Receive Date: 20131211
  Receipt Date: 20131211
  Transmission Date: 20140711
  Serious: Yes (Other)
  Sender: FDA-Public Use
  Company Number: M-13-010

PATIENT
  Age: 46 Year
  Sex: 0

DRUGS (6)
  1. DOXYCYCLINE HYCLATE [Suspect]
     Indication: ACNE
     Dosage: 2 TABLETS PER DAY
     Dates: start: 20130404
  2. LEVOTHYROXINE [Concomitant]
  3. CAMBIA-PRN [Concomitant]
  4. MIGRA-EASE [Concomitant]
  5. FISH OIL [Concomitant]
  6. FOLIC ACID [Concomitant]

REACTIONS (5)
  - Nausea [None]
  - Hyperhidrosis [None]
  - Dizziness [None]
  - Pain [None]
  - Pyrexia [None]
